FAERS Safety Report 10019691 (Version 1)
Quarter: 2014Q1

REPORT INFORMATION
  Report Type: Report from Study
  Country: US (occurrence: US)
  Receive Date: 20140318
  Receipt Date: 20140318
  Transmission Date: 20141002
  Serious: Yes (Other)
  Sender: FDA-Public Use
  Company Number: US-ABBVIE-14P-163-1211134-00

PATIENT
  Age: 67 Year
  Sex: Male

DRUGS (8)
  1. HUMIRA [Suspect]
     Indication: PSORIASIS
  2. VITAMIN [Concomitant]
     Indication: VITAMIN SUPPLEMENTATION
     Route: 048
  3. PURPLE PILL [Concomitant]
     Indication: DYSPEPSIA
  4. PURPLE PILL [Concomitant]
     Indication: DYSPEPSIA
  5. PURPLE PILL [Concomitant]
     Indication: GASTROOESOPHAGEAL REFLUX DISEASE
  6. HCTZ [Concomitant]
     Indication: HYPERTENSION
  7. JANUMET [Concomitant]
     Indication: PRODUCT USED FOR UNKNOWN INDICATION
  8. GLIPIZIDE [Concomitant]
     Indication: PRODUCT USED FOR UNKNOWN INDICATION
     Dosage: ONE IN THE MORNING AND EVENING
     Dates: start: 201312

REACTIONS (4)
  - Haemoglobin decreased [Not Recovered/Not Resolved]
  - Gastric varices haemorrhage [Not Recovered/Not Resolved]
  - Blood iron decreased [Not Recovered/Not Resolved]
  - Diabetes mellitus [Not Recovered/Not Resolved]
